FAERS Safety Report 4959737-8 (Version None)
Quarter: 2006Q1

REPORT INFORMATION
  Report Type: 
  Country: None (occurrence: None)
  Receive Date: 20060331
  Receipt Date: 20060328
  Transmission Date: 20060701
  Serious: Yes (Other)
  Sender: FDA-Public Use
  Company Number: US-JNJFOC-20060203462

PATIENT
  Sex: Female
  Weight: 73.94 kg

DRUGS (16)
  1. ELMIRON [Suspect]
     Indication: CYSTITIS INTERSTITIAL
     Route: 048
  2. BENADRYL [Suspect]
     Route: 048
  3. VIVELLE [Concomitant]
  4. M.V.I. [Concomitant]
  5. M.V.I. [Concomitant]
  6. M.V.I. [Concomitant]
  7. M.V.I. [Concomitant]
  8. M.V.I. [Concomitant]
  9. M.V.I. [Concomitant]
  10. M.V.I. [Concomitant]
  11. M.V.I. [Concomitant]
  12. POTASSIUM CHLORIDE [Concomitant]
  13. CALCIUM GLUCONATE [Concomitant]
  14. VITAMIN E [Concomitant]
  15. ASCORBIC ACID [Concomitant]
  16. FESO4 [Concomitant]

REACTIONS (1)
  - EOSINOPHILIC COLITIS [None]
